FAERS Safety Report 5719004-1 (Version None)
Quarter: 2008Q2

REPORT INFORMATION
  Report Type: 
  Country: None (occurrence: None)
  Receive Date: 20080423
  Receipt Date: 20080409
  Transmission Date: 20081010
  Serious: Yes (Hospitalization)
  Sender: FDA-Public Use
  Company Number: 2008AL002187

PATIENT
  Age: 77 Year
  Sex: Female

DRUGS (3)
  1. METFORMIN HYDROCHLORIDE [Suspect]
     Dosage: 3 GM;QD
  2. PERINDOPRIL ERBUMINE [Concomitant]
  3. SIMVASTATIN [Concomitant]

REACTIONS (14)
  - ABDOMINAL PAIN [None]
  - BLOOD CREATININE INCREASED [None]
  - BLOOD DISORDER [None]
  - BLOOD GLUCOSE INCREASED [None]
  - HAEMODIALYSIS [None]
  - INFECTION [None]
  - LACTIC ACIDOSIS [None]
  - PLATELET COUNT INCREASED [None]
  - POOR PERIPHERAL CIRCULATION [None]
  - PSYCHOMOTOR HYPERACTIVITY [None]
  - RESPIRATORY RATE INCREASED [None]
  - STAPHYLOCOCCAL INFECTION [None]
  - VOMITING [None]
  - WHITE BLOOD CELL COUNT INCREASED [None]
